FAERS Safety Report 21687618 (Version 2)
Quarter: 2023Q1

REPORT INFORMATION
  Report Type: Spontaneous
  Country: US (occurrence: US)
  Receive Date: 20221206
  Receipt Date: 20230130
  Transmission Date: 20230417
  Serious: No
  Sender: FDA-Public Use
  Company Number: US-BRISTOL-MYERS SQUIBB COMPANY-2022-148386

PATIENT
  Age: 58 Year
  Sex: Female

DRUGS (1)
  1. ORENCIA [Suspect]
     Active Substance: ABATACEPT
     Indication: Rheumatoid arthritis
     Route: 042
     Dates: start: 20210907

REACTIONS (6)
  - Dry skin [Unknown]
  - Skin fissures [Unknown]
  - Hypersensitivity [Unknown]
  - Joint swelling [Unknown]
  - Arthralgia [Unknown]
  - Dermatitis [Unknown]
